FAERS Safety Report 19211639 (Version 6)
Quarter: 2022Q1

REPORT INFORMATION
  Report Type: Report from Study
  Country: ES (occurrence: None)
  Receive Date: 20210504
  Receipt Date: 20220303
  Transmission Date: 20220424
  Serious: Yes (Hospitalization)
  Sender: FDA-Public Use
  Company Number: ES-ROCHE-2803144

PATIENT
  Age: 60 Year
  Sex: Male
  Weight: 78.8 kg

DRUGS (25)
  1. ATEZOLIZUMAB [Suspect]
     Active Substance: ATEZOLIZUMAB
     Indication: Pancreatic carcinoma metastatic
     Dosage: ON 16/MAR/2021, HE RECEIVED MOST RECENT DOSE OF ATEZOLIZUMAB (840 MG) PRIOR TO ONSET OF SERIOUS ADVE
     Route: 041
     Dates: start: 20201027
  2. BEVACIZUMAB [Suspect]
     Active Substance: BEVACIZUMAB
     Indication: Pancreatic carcinoma metastatic
     Dosage: ON 16/MAR/2021, HE RECEIVED MOST RECENT DOSE OF ALBUMIN BOUND PACLITAXEL (800 UNIT NOT REPORTED) PRI
     Route: 042
     Dates: start: 20201027
  3. GEMCITABINE [Suspect]
     Active Substance: GEMCITABINE
     Indication: Pancreatic carcinoma metastatic
     Dosage: ON 16/MAR/2021, HE RECEIVED MOST RECENT DOSE OF GEMCITABINE (1528 MG) PRIOR TO ONSET OF SERIOUS ADVE
     Route: 042
     Dates: start: 20201027
  4. PACLITAXEL [Suspect]
     Active Substance: PACLITAXEL
     Indication: Pancreatic carcinoma metastatic
     Dosage: ON 16/MAR/2021, HE RECEIVED MOST RECENT DOSE OF ALBUMIN BOUND PACLITAXEL (191 MG) PRIOR TO ONSET OF
     Route: 042
     Dates: start: 20201027
  5. OMEPRAZOLE [Concomitant]
     Active Substance: OMEPRAZOLE
     Dates: end: 20210615
  6. IBUPROFEN [Concomitant]
     Active Substance: IBUPROFEN
     Indication: Pain
     Dates: start: 20201016
  7. ENALAPRIL [Concomitant]
     Active Substance: ENALAPRIL
     Indication: Hypertension
     Dates: start: 20201110, end: 20210330
  8. RINOBANEDIF (SPAIN) [Concomitant]
     Indication: Epistaxis
     Dates: start: 20201217
  9. MIRTAZAPINE [Concomitant]
     Active Substance: MIRTAZAPINE
     Dates: start: 20210202, end: 20210316
  10. DEXCHLORPHENIRAMINE [Concomitant]
     Active Substance: DEXCHLORPHENIRAMINE
     Indication: Premedication
     Dates: start: 20210302, end: 20210302
  11. DEXCHLORPHENIRAMINE [Concomitant]
     Active Substance: DEXCHLORPHENIRAMINE
     Dates: start: 20210316, end: 20210316
  12. ONDANSETRON [Concomitant]
     Active Substance: ONDANSETRON
     Indication: Premedication
     Dates: start: 20210302, end: 20210302
  13. ONDANSETRON [Concomitant]
     Active Substance: ONDANSETRON
     Dates: start: 20210316, end: 20210316
  14. MEGESTROL ACETATE [Concomitant]
     Active Substance: MEGESTROL ACETATE
     Indication: Decreased appetite
     Dates: start: 20210302, end: 20210402
  15. LACTULOSE [Concomitant]
     Active Substance: LACTULOSE
     Indication: Constipation
     Dates: start: 20210316, end: 20210402
  16. MOTILIUM [Concomitant]
     Active Substance: DOMPERIDONE
     Indication: Vomiting
     Dates: start: 20210316, end: 20210615
  17. ESCITALOPRAM [Concomitant]
     Active Substance: ESCITALOPRAM OXALATE
     Indication: Insomnia
     Dates: start: 20210316, end: 20210601
  18. PANCRELIPASE [Concomitant]
     Active Substance: PANCRELIPASE
     Indication: Pancreatic failure
     Dates: start: 20210316
  19. FAMOTIDINE [Concomitant]
     Active Substance: FAMOTIDINE
     Route: 048
     Dates: start: 20210407, end: 20210427
  20. FAMOTIDINE [Concomitant]
     Active Substance: FAMOTIDINE
     Route: 048
     Dates: start: 20210330, end: 20210427
  21. ACETAMINOPHEN [Concomitant]
     Active Substance: ACETAMINOPHEN
     Indication: Pain
     Dates: start: 20210330, end: 20211122
  22. AMLODIPINE [Concomitant]
     Active Substance: AMLODIPINE BESYLATE
     Indication: Hypertension
     Dates: start: 20210405, end: 20210428
  23. HIBOR [Concomitant]
     Dates: start: 20210330
  24. METRONIDAZOLE [Concomitant]
     Active Substance: METRONIDAZOLE
     Indication: Bacterial infection
     Route: 048
     Dates: start: 20210326, end: 20210508
  25. LORMETAZEPAM [Concomitant]
     Active Substance: LORMETAZEPAM
     Indication: Anxiety
     Dates: start: 20210109, end: 20220109

REACTIONS (1)
  - Acute kidney injury [Recovered/Resolved]

NARRATIVE: CASE EVENT DATE: 20210330
